FAERS Safety Report 5409808-7 (Version None)
Quarter: 2007Q3

REPORT INFORMATION
  Report Type: 
  Country: None (occurrence: None)
  Receive Date: 20070809
  Receipt Date: 20070806
  Transmission Date: 20080115
  Serious: Yes (Hospitalization)
  Sender: FDA-Public Use
  Company Number: US-MERCK-0708USA01234

PATIENT
  Age: 54 Year
  Sex: Male

DRUGS (7)
  1. FOSAMAX [Suspect]
     Indication: OSTEOPOROSIS
     Route: 048
     Dates: start: 19950101, end: 20070710
  2. FOSAMAX [Suspect]
     Route: 048
     Dates: start: 20070731
  3. SYNTHROID [Concomitant]
     Route: 065
  4. COZAAR [Concomitant]
     Route: 048
  5. PREDNISONE [Concomitant]
     Route: 065
  6. INSULIN [Concomitant]
     Route: 065
  7. APIDRA [Concomitant]
     Route: 065

REACTIONS (5)
  - ANOREXIA [None]
  - CHILLS [None]
  - DEHYDRATION [None]
  - PYREXIA [None]
  - VOMITING [None]
